FAERS Safety Report 22030637 (Version 2)
Quarter: 2023Q1

REPORT INFORMATION
  Report Type: Report from Study
  Country: AU (occurrence: AU)
  Receive Date: 20230223
  Receipt Date: 20230309
  Transmission Date: 20230417
  Serious: Yes (Hospitalization, Other)
  Sender: FDA-Public Use
  Company Number: AU-002147023-NVSC2023AU040069

PATIENT
  Age: 19 Year
  Sex: Male
  Weight: 88.3 kg

DRUGS (1)
  1. KYMRIAH [Suspect]
     Active Substance: TISAGENLECLEUCEL
     Indication: Diffuse large B-cell lymphoma
     Dosage: UNK, ONCE/SINGLE
     Route: 042
     Dates: start: 20230113

REACTIONS (3)
  - Immune thrombocytopenia [Recovering/Resolving]
  - Bone marrow failure [Not Recovered/Not Resolved]
  - Ill-defined disorder [Unknown]

NARRATIVE: CASE EVENT DATE: 20230119
